FAERS Safety Report 5451511-1 (Version None)
Quarter: 2007Q3

REPORT INFORMATION
  Report Type: 
  Country: None (occurrence: None)
  Receive Date: 20070913
  Receipt Date: 20070904
  Transmission Date: 20080115
  Serious: Yes (Hospitalization, Other)
  Sender: FDA-Public Use
  Company Number: HQWYE232926JUL07

PATIENT
  Sex: Female
  Weight: 53 kg

DRUGS (2)
  1. TRIDIOL-28 [Suspect]
     Indication: CONTRACEPTION
     Route: 048
     Dates: start: 20050104, end: 20060605
  2. TRIDIOL-28 [Suspect]
     Route: 048
     Dates: start: 20061002, end: 20070721

REACTIONS (7)
  - ALANINE AMINOTRANSFERASE INCREASED [None]
  - ASPARTATE AMINOTRANSFERASE INCREASED [None]
  - JAUNDICE [None]
  - LIVER DISORDER [None]
  - MALAISE [None]
  - PYREXIA [None]
  - VOMITING [None]
